FAERS Safety Report 8459779-4 (Version None)
Quarter: 2012Q2

REPORT INFORMATION
  Report Type: 
  Country: None (occurrence: None)
  Receive Date: 20120622
  Receipt Date: 20120613
  Transmission Date: 20120825
  Serious: Yes (Hospitalization, Other)
  Sender: FDA-Public Use
  Company Number: US-MERCK-1202USA03899

PATIENT
  Age: 64 Year
  Sex: Female
  Weight: 79 kg

DRUGS (5)
  1. HORMONES (UNSPECIFIED) [Concomitant]
     Route: 065
     Dates: start: 19800101, end: 20020101
  2. FOSAMAX [Suspect]
     Indication: OSTEOPOROSIS
     Route: 048
     Dates: start: 20000101, end: 20100601
  3. CORTICOSTEROIDS (UNSPECIFIED) [Concomitant]
     Route: 065
     Dates: start: 19710101, end: 20120101
  4. CALCIUM (UNSPECIFIED) [Concomitant]
     Route: 048
  5. ONE-A-DAY ESSENTIAL VITAMINS [Concomitant]
     Route: 048

REACTIONS (35)
  - DEVICE FAILURE [None]
  - PROCEDURAL HYPOTENSION [None]
  - PAIN IN EXTREMITY [None]
  - HYPERSENSITIVITY [None]
  - HAEMORRHOIDS [None]
  - CHRONIC SINUSITIS [None]
  - BASOSQUAMOUS CARCINOMA [None]
  - SOMNOLENCE [None]
  - EYE PAIN [None]
  - PHARYNGITIS [None]
  - IRRITABLE BOWEL SYNDROME [None]
  - VENOUS INSUFFICIENCY [None]
  - LOW TURNOVER OSTEOPATHY [None]
  - UPPER RESPIRATORY TRACT INFECTION [None]
  - TEETH BRITTLE [None]
  - ANAEMIA POSTOPERATIVE [None]
  - PRURITUS [None]
  - DIVERTICULITIS [None]
  - PROCEDURAL HYPERTENSION [None]
  - ACTINIC KERATOSIS [None]
  - BRONCHITIS [None]
  - BLOOD CHOLESTEROL INCREASED [None]
  - OTITIS MEDIA [None]
  - MUSCLE STRAIN [None]
  - CHEST PAIN [None]
  - FEMUR FRACTURE [None]
  - FALL [None]
  - INCISION SITE HAEMORRHAGE [None]
  - HAEMORRHOIDAL HAEMORRHAGE [None]
  - SINUS HEADACHE [None]
  - RHINITIS ALLERGIC [None]
  - PARAESTHESIA [None]
  - ESSENTIAL HYPERTENSION [None]
  - SLEEP APNOEA SYNDROME [None]
  - DEPRESSION [None]
